FAERS Safety Report 12583925 (Version 3)
Quarter: 2016Q4

REPORT INFORMATION
  Report Type: Spontaneous
  Country: US (occurrence: US)
  Receive Date: 20160722
  Receipt Date: 20161215
  Transmission Date: 20170207
  Serious: Yes (Hospitalization, Other)
  Sender: FDA-Public Use
  Company Number: US-BAYER-2016-140828

PATIENT
  Sex: Female

DRUGS (7)
  1. OXYCODONE [Concomitant]
     Active Substance: OXYCODONE
     Dosage: 5 MG, UNK
  2. CIPRO [Suspect]
     Active Substance: CIPROFLOXACIN HYDROCHLORIDE
     Indication: SINUSITIS
     Dosage: 500 MG, UNK
     Dates: start: 20141017
  3. ACETAMINOPHEN. [Concomitant]
     Active Substance: ACETAMINOPHEN
  4. CIPRO [Suspect]
     Active Substance: CIPROFLOXACIN HYDROCHLORIDE
     Indication: EAR INFECTION
     Dosage: 250 MG, UNK
  5. CIPRO [Suspect]
     Active Substance: CIPROFLOXACIN HYDROCHLORIDE
     Indication: UPPER RESPIRATORY TRACT INFECTION
     Dosage: 250 MG, UNK
     Dates: start: 20141017, end: 20141021
  6. FLUOROQUINOLONES [Concomitant]
     Active Substance: UNSPECIFIED INGREDIENT
  7. CEPHALEXIN. [Concomitant]
     Active Substance: CEPHALEXIN

REACTIONS (26)
  - Tendon rupture [None]
  - Tendonitis [None]
  - Tendon disorder [None]
  - Feeling abnormal [None]
  - Arthralgia [None]
  - Complex regional pain syndrome [None]
  - Nerve injury [None]
  - Neuropathy peripheral [None]
  - Tendinous contracture [None]
  - Limb discomfort [None]
  - Tenderness [None]
  - Vomiting [None]
  - Skin disorder [None]
  - Blister [None]
  - Muscular weakness [None]
  - Gait disturbance [None]
  - Myalgia [None]
  - Musculoskeletal stiffness [None]
  - Muscle spasms [None]
  - Rotator cuff syndrome [None]
  - Prophylaxis [None]
  - Anxiety [None]
  - Pain in extremity [None]
  - Pain [None]
  - Weight bearing difficulty [None]
  - Hypoaesthesia [None]
